FAERS Safety Report 23127374 (Version 1)
Quarter: 2023Q4

REPORT INFORMATION
  Report Type: Spontaneous
  Country: DE (occurrence: DE)
  Receive Date: 20231031
  Receipt Date: 20231031
  Transmission Date: 20240110
  Serious: Yes (Hospitalization, Other)
  Sender: FDA-Public Use
  Company Number: None

PATIENT
  Age: 70 Year
  Sex: Male
  Weight: 61 kg

DRUGS (33)
  1. PREDNISOLONE [Suspect]
     Active Substance: PREDNISOLONE
     Indication: Cholangitis sclerosing
     Dosage: 15 MILLIGRAM,  PER DAY
     Route: 048
  2. PREDNISOLONE [Suspect]
     Active Substance: PREDNISOLONE
     Indication: Immunoglobulin G4 related disease
     Dosage: 20 MILLIGRAM PER DAY
     Route: 048
  3. PREDNISOLONE [Suspect]
     Active Substance: PREDNISOLONE
     Indication: Lymphadenopathy
     Dosage: 5 MILLIGRAM,  PER DAY
     Route: 048
  4. PREDNISOLONE [Suspect]
     Active Substance: PREDNISOLONE
     Indication: Autoimmune pancreatitis
     Dosage: 10 MILLIGRAM, PER DAY
     Route: 048
  5. PREDNISOLONE [Suspect]
     Active Substance: PREDNISOLONE
     Indication: Sialoadenitis
     Dosage: 30 MILLIGRAM,  PER DAY
     Route: 048
  6. PREDNISOLONE [Suspect]
     Active Substance: PREDNISOLONE
     Dosage: UNK
     Route: 048
  7. PREDNISOLONE [Suspect]
     Active Substance: PREDNISOLONE
     Dosage: 10 MILLIGRAM; PER DAY; (TAPERED AGAIN TO 10 MG/D WITHIN THE NEXT 4 WEEKS)
     Route: 048
  8. PREDNISOLONE [Suspect]
     Active Substance: PREDNISOLONE
     Dosage: UNK; (GRADUALLY TAPERED)
     Route: 065
  9. AZATHIOPRINE [Suspect]
     Active Substance: AZATHIOPRINE
     Indication: Cholangitis sclerosing
     Dosage: UNK
     Route: 065
  10. AZATHIOPRINE [Suspect]
     Active Substance: AZATHIOPRINE
     Indication: Immunoglobulin G4 related disease
  11. BUDESONIDE [Suspect]
     Active Substance: BUDESONIDE
     Indication: Cholangitis sclerosing
     Dosage: UNK; (SLOWLY INCREASED)
     Route: 048
  12. BUDESONIDE [Suspect]
     Active Substance: BUDESONIDE
     Indication: Immunoglobulin G4 related disease
     Dosage: 9 MILLIGRAM, PER DAY; ORAL BUDESONIDE 3 MG/D WERE RESTARTED IN COMBINATION WITH PREDNISOLONE (10 MG/
     Route: 048
  13. BUDESONIDE [Suspect]
     Active Substance: BUDESONIDE
     Dosage: 3 MILLIGRAM; PER DAY
     Route: 048
  14. BUDESONIDE [Suspect]
     Active Substance: BUDESONIDE
     Dosage: 3 MILLIGRAM; PER DAY; RESTARTED
     Route: 048
  15. BUDESONIDE [Suspect]
     Active Substance: BUDESONIDE
     Dosage: 9 MILLIGRAM, PER DAY;
     Route: 048
  16. BUDESONIDE [Suspect]
     Active Substance: BUDESONIDE
     Dosage: 6 MILLIGRAM; PER DAY
     Route: 048
  17. BUDESONIDE [Suspect]
     Active Substance: BUDESONIDE
     Dosage: 3 MILLIGRAM; PER DAY
     Route: 048
  18. MERCAPTOPURINE [Suspect]
     Active Substance: MERCAPTOPURINE
     Indication: Immunoglobulin G4 related disease
     Dosage: 50 MILLIGRAM PER DAY
     Route: 048
  19. MERCAPTOPURINE [Suspect]
     Active Substance: MERCAPTOPURINE
     Indication: Cholangitis sclerosing
     Dosage: 75 MILLIGRAM, PER DAY
     Route: 048
  20. MERCAPTOPURINE [Suspect]
     Active Substance: MERCAPTOPURINE
     Dosage: UNK (MAX. 2.5 MG/KG BODY WEIGHT, ADJUSTED FOR BODY WEIGHT, WHICH IN PATIENT WAS 152 MG/D P. O.)
     Route: 048
  21. MERCAPTOPURINE [Suspect]
     Active Substance: MERCAPTOPURINE
     Dosage: 50 MILLIGRAM PER DAY
     Route: 048
  22. MERCAPTOPURINE [Suspect]
     Active Substance: MERCAPTOPURINE
     Dosage: 25 MILLIGRAM PER DAY RESTARTED
     Route: 048
  23. MERCAPTOPURINE [Suspect]
     Active Substance: MERCAPTOPURINE
     Dosage: 50 MILLIGRAM PER DAY
     Route: 048
  24. MERCAPTOPURINE [Suspect]
     Active Substance: MERCAPTOPURINE
     Dosage: 30 MILLIGRAM; PER DAY
     Route: 048
  25. ASPIRIN [Concomitant]
     Active Substance: ASPIRIN
     Indication: Product used for unknown indication
     Dosage: 100 MILLIGRAM,; PER DAY
     Route: 065
  26. CALCIUM [Concomitant]
     Active Substance: CALCIUM
     Indication: Product used for unknown indication
     Dosage: 1250 MILLIGRAM; PER DAY
     Route: 065
  27. ACTRAPID [Concomitant]
     Active Substance: INSULIN HUMAN
     Indication: Product used for unknown indication
     Dosage: 8 INTERNATIONAL UNIT,  PER DAY; (0-1-1)
     Route: 058
  28. LEVEMIR [Concomitant]
     Active Substance: INSULIN DETEMIR
     Indication: Product used for unknown indication
     Dosage: 10 INTERNATIONAL UNIT,  PER DAY; (1-0-0)
     Route: 058
  29. METOPROLOL [Concomitant]
     Active Substance: METOPROLOL
     Indication: Product used for unknown indication
     Dosage: 47.5 MILLIGRAM,; PER DAY
     Route: 065
  30. METOPROLOL [Concomitant]
     Active Substance: METOPROLOL
     Dosage: 40 MILLIGRAM,; PER DAY
     Route: 065
  31. PANTOPRAZOLE [Concomitant]
     Active Substance: PANTOPRAZOLE
     Indication: Product used for unknown indication
     Dosage: 40 MILLIGRAM; PER DAY
     Route: 065
  32. PANTOPRAZOLE [Concomitant]
     Active Substance: PANTOPRAZOLE
     Dosage: 47.5 MILLIGRAM; PER DAY
     Route: 065
  33. CHOLECALCIFEROL [Concomitant]
     Active Substance: CHOLECALCIFEROL
     Indication: Product used for unknown indication
     Dosage: 1000 INTERNATIONAL UNIT; PER DAY
     Route: 065

REACTIONS (10)
  - Hyperlipidaemia [Unknown]
  - Cholecystitis infective [Recovered/Resolved]
  - Peritonitis [Recovered/Resolved]
  - Steroid diabetes [Unknown]
  - Diabetes mellitus [Recovered/Resolved]
  - Condition aggravated [Recovered/Resolved]
  - Drug ineffective [Unknown]
  - Abdominal pain [Unknown]
  - Abdominal discomfort [Unknown]
  - Off label use [Unknown]
